FAERS Safety Report 19943183 (Version 2)
Quarter: 2021Q4

REPORT INFORMATION
  Report Type: Spontaneous
  Country: PT (occurrence: PT)
  Receive Date: 20211012
  Receipt Date: 20211028
  Transmission Date: 20220303
  Serious: Yes (Other)
  Sender: FDA-Public Use
  Company Number: PT-BRISTOL-MYERS SQUIBB COMPANY-BMS-2021-100010

PATIENT
  Age: 30 Year
  Sex: Female

DRUGS (5)
  1. KENALOG-40 [Suspect]
     Active Substance: TRIAMCINOLONE ACETONIDE
     Indication: Diffuse lamellar keratitis
     Dosage: 1 DOSAGE FORM ON DAY (ON DAY 15, 16, 18)
     Route: 057
  2. DEXAMETHASONE SODIUM PHOSPHATE [Suspect]
     Active Substance: DEXAMETHASONE SODIUM PHOSPHATE
     Indication: Product used for unknown indication
     Dosage: 48 HRS (5ID)
     Route: 061
  3. PREDNISOLONE [Suspect]
     Active Substance: PREDNISOLONE
     Indication: Diffuse lamellar keratitis
     Dosage: 60 MILLIGRAM, QD
     Route: 048
  4. PREDNISOLONE [Suspect]
     Active Substance: PREDNISOLONE
     Dosage: 20MG, EVERY 3 DAYS
     Route: 048
  5. FLOXEDOL [Concomitant]
     Indication: Product used for unknown indication
     Dosage: 5ID (NUMBER OF UNITS IN THE INTERVAL 4.8 HRS)
     Route: 061

REACTIONS (3)
  - Keratitis fungal [Recovered/Resolved]
  - Condition aggravated [Recovered/Resolved]
  - Scopulariopsis infection [Recovered/Resolved]
